FAERS Safety Report 12943041 (Version 1)
Quarter: 2016Q4

REPORT INFORMATION
  Report Type: Spontaneous
  Country: BR (occurrence: BR)
  Receive Date: 20161115
  Receipt Date: 20161115
  Transmission Date: 20170207
  Serious: Yes (Hospitalization, Other)
  Sender: FDA-Public Use
  Company Number: BR-ABBVIE-16K-020-1776010-00

PATIENT
  Sex: Female

DRUGS (1)
  1. HUMIRA [Suspect]
     Active Substance: ADALIMUMAB
     Indication: CROHN^S DISEASE
     Route: 058
     Dates: start: 2016

REACTIONS (10)
  - Abdominal abscess [Recovered/Resolved]
  - Abdominal abscess [Recovering/Resolving]
  - Unevaluable event [Unknown]
  - Alopecia [Unknown]
  - Weight increased [Unknown]
  - Gastrointestinal obstruction [Recovering/Resolving]
  - Abdominal abscess [Recovered/Resolved]
  - Gastrointestinal fistula [Recovering/Resolving]
  - Procedural complication [Unknown]
  - Abdominal abscess [Recovered/Resolved]

NARRATIVE: CASE EVENT DATE: 2016
